FAERS Safety Report 9178573 (Version 1)
Quarter: 2012Q4

REPORT INFORMATION
  Report Type: 
  Country: US (occurrence: US)
  Receive Date: 20121029
  Receipt Date: 20121029
  Transmission Date: 20130627
  Serious: Yes (Hospitalization)
  Sender: FDA-Public Use
  Company Number: US-ACTELION-A-US2012-73527

PATIENT
  Age: 62 Year
  Sex: Male

DRUGS (6)
  1. VENTAVIS [Suspect]
     Indication: PULMONARY ARTERIAL HYPERTENSION
     Dosage: UNK
     Route: 055
  2. ADCIRCA [Concomitant]
  3. LETAIRIS [Concomitant]
  4. ASPIRIN [Concomitant]
  5. DIGOXIN [Concomitant]
  6. FUROSEMIDE [Concomitant]

REACTIONS (1)
  - Haematoma [Recovering/Resolving]
